FAERS Safety Report 15984073 (Version 1)
Quarter: 2019Q1

REPORT INFORMATION
  Report Type: Report from Study
  Country: None (occurrence: ES)
  Receive Date: 20190220
  Receipt Date: 20190220
  Transmission Date: 20190418
  Serious: Yes (Death, Hospitalization)
  Sender: FDA-Public Use
  Company Number: ES-ABBVIE-19S-144-2610207-00

PATIENT
  Age: 78 Year
  Sex: Female
  Weight: 65 kg

DRUGS (1)
  1. DUODOPA [Suspect]
     Active Substance: CARBIDOPA\LEVODOPA
     Indication: PARKINSON^S DISEASE
     Route: 050
     Dates: start: 20171212

REACTIONS (7)
  - Stoma site odour [Not Recovered/Not Resolved]
  - Bezoar [Recovered/Resolved]
  - Sepsis [Fatal]
  - Pneumonia [Fatal]
  - Nosocomial infection [Fatal]
  - Stoma site infection [Not Recovered/Not Resolved]
  - Stoma site extravasation [Not Recovered/Not Resolved]

NARRATIVE: CASE EVENT DATE: 201812
